FAERS Safety Report 8541534-8 (Version None)
Quarter: 2012Q3

REPORT INFORMATION
  Report Type: 
  Country: None (occurrence: None)
  Receive Date: 20120726
  Receipt Date: 20120404
  Transmission Date: 20120928
  Serious: No
  Sender: FDA-Public Use
  Company Number: US-MUTUAL PHARMACEUTICAL COMPANY, INC.-CLCY20120056

PATIENT
  Sex: Female

DRUGS (1)
  1. COLCRYS [Suspect]
     Indication: GOUT
     Route: 065
     Dates: start: 20120328, end: 20120425

REACTIONS (1)
  - DRUG EFFECT DECREASED [None]
